FAERS Safety Report 15772750 (Version 1)
Quarter: 2018Q4

REPORT INFORMATION
  Report Type: Spontaneous
  Country: GB (occurrence: RO)
  Receive Date: 20181228
  Receipt Date: 20181228
  Transmission Date: 20190205
  Serious: Yes (Hospitalization)
  Sender: FDA-Public Use
  Company Number: RO-FRESENIUS KABI-FK201813087

PATIENT
  Age: 61 Year
  Sex: Male

DRUGS (7)
  1. CANDESARTAN CILEXETIL. [Concomitant]
     Active Substance: CANDESARTAN CILEXETIL
     Indication: HYPERTENSION
     Route: 048
  2. RANITIDINE HYDROCHLORIDE. [Concomitant]
     Active Substance: RANITIDINE HYDROCHLORIDE
     Indication: PROPHYLAXIS AGAINST GASTROINTESTINAL ULCER
     Route: 042
  3. LORATADINE. [Concomitant]
     Active Substance: LORATADINE
     Indication: ALLERGY PROPHYLAXIS
     Route: 048
  4. CARBOPLATIN INJECTION 10MG/ML [Suspect]
     Active Substance: CARBOPLATIN
     Indication: LUNG ADENOCARCINOMA
     Route: 042
     Dates: start: 20180817, end: 20180817
  5. INDAPAMIDE. [Concomitant]
     Active Substance: INDAPAMIDE
     Indication: HYPERTENSION
     Route: 048
  6. PACLITAXEL. [Concomitant]
     Active Substance: PACLITAXEL
     Indication: LUNG ADENOCARCINOMA
     Route: 065
  7. HYDROCORTISONE. [Concomitant]
     Active Substance: HYDROCORTISONE
     Indication: ALLERGY PROPHYLAXIS
     Route: 042

REACTIONS (3)
  - Hyperhidrosis [Recovered/Resolved]
  - Hyperthermia [Recovered/Resolved]
  - Hypertension [Recovered/Resolved]

NARRATIVE: CASE EVENT DATE: 20180817
